FAERS Safety Report 23394911 (Version 1)
Quarter: 2024Q1

REPORT INFORMATION
  Report Type: Report from Study
  Country: US (occurrence: US)
  Receive Date: 20240112
  Receipt Date: 20240112
  Transmission Date: 20240409
  Serious: Yes (Death, Other)
  Sender: FDA-Public Use
  Company Number: US-IPSEN Group, Research and Development-2024-00472

PATIENT
  Sex: Female
  Weight: 54.97 kg

DRUGS (22)
  1. TAZVERIK [Suspect]
     Active Substance: TAZEMETOSTAT HYDROBROMIDE
     Indication: Product used for unknown indication
     Route: 048
  2. BACTRIM [Concomitant]
     Active Substance: SULFAMETHOXAZOLE\TRIMETHOPRIM
  3. CYCLOBENZAPRINE [Concomitant]
     Active Substance: CYCLOBENZAPRINE
  4. DULOXETINE [Concomitant]
     Active Substance: DULOXETINE
  5. FAMOTIDINE [Concomitant]
     Active Substance: FAMOTIDINE
  6. HYDROCORTISONE [Concomitant]
     Active Substance: HYDROCORTISONE
     Dosage: 1%
  7. HYDROXYZINE [Concomitant]
     Active Substance: HYDROXYZINE HYDROCHLORIDE
  8. LACTULOSE [Concomitant]
     Active Substance: LACTULOSE
  9. LIDOCAINE [Concomitant]
     Active Substance: LIDOCAINE
     Dosage: 4%CREAM
  10. LORAZEPAM [Concomitant]
     Active Substance: LORAZEPAM
  11. LYRICA [Concomitant]
     Active Substance: PREGABALIN
  12. MAGESTROL [Concomitant]
  13. ALUMINUM HYDROXIDE\DIMETHICONE\DIPHENHYDRAMINE\LIDOCAINE\MAGNESIUM HYD [Concomitant]
     Active Substance: ALUMINUM HYDROXIDE\DIMETHICONE\DIPHENHYDRAMINE\LIDOCAINE\MAGNESIUM HYDROXIDE
  14. MELATONIN [Concomitant]
     Active Substance: MELATONIN
  15. METHADONE [Concomitant]
     Active Substance: METHADONE HYDROCHLORIDE
  16. MORPHINE [Concomitant]
     Active Substance: MORPHINE
  17. NORETHINDRONE [Concomitant]
     Active Substance: NORETHINDRONE
  18. ONDANSETRON [Concomitant]
     Active Substance: ONDANSETRON
  19. PROMETHAZINE [Concomitant]
     Active Substance: PROMETHAZINE HYDROCHLORIDE
  20. SCOPOLAMINE TRANDERMAL SYSTEM [Concomitant]
     Active Substance: SCOPOLAMINE
  21. SENNA [Concomitant]
     Active Substance: SENNA LEAF\SENNOSIDES\SENNOSIDES A AND B
  22. TYLENOL [Concomitant]
     Active Substance: ACETAMINOPHEN

REACTIONS (1)
  - Death [Fatal]
